FAERS Safety Report 18030378 (Version 1)
Quarter: 2020Q3

REPORT INFORMATION
  Report Type: Spontaneous
  Country: US (occurrence: US)
  Receive Date: 20200715
  Receipt Date: 20200715
  Transmission Date: 20201103
  Serious: No
  Sender: FDA-Public Use
  Company Number: US-OPTINOSE US, INC-2020OPT000466

PATIENT
  Age: 30 Year
  Sex: Male

DRUGS (3)
  1. XHANCE [Suspect]
     Active Substance: FLUTICASONE PROPIONATE
     Indication: SINUS POLYP
     Route: 045
     Dates: start: 202005
  2. MULTIVITAMIN GUMMIES ADULT [Concomitant]
     Indication: PRODUCT USED FOR UNKNOWN INDICATION
     Route: 065
  3. XHANCE [Suspect]
     Active Substance: FLUTICASONE PROPIONATE
     Indication: SINUS POLYP DEGENERATION

REACTIONS (4)
  - Pyrexia [Recovered/Resolved]
  - Nasal dryness [Unknown]
  - Epistaxis [Unknown]
  - Product dose omission issue [Unknown]
